FAERS Safety Report 9386902 (Version 1)
Quarter: 2013Q3

REPORT INFORMATION
  Report Type: Spontaneous
  Country: US (occurrence: None)
  Receive Date: 20130708
  Receipt Date: 20130708
  Transmission Date: 20140515
  Serious: Yes (Life-Threatening, Hospitalization, Disabling)
  Sender: FDA-Public Use
  Company Number: None

PATIENT
  Age: 58 Year
  Sex: Male
  Weight: 136.08 kg

DRUGS (8)
  1. METHYLPREDNISOLONE ACETATE [Suspect]
     Indication: BACK PAIN
     Dates: end: 20120905
  2. METHYLPREDNISOLONE ACETATE [Suspect]
     Indication: HYPOAESTHESIA
     Dates: end: 20120905
  3. METHYLPREDNISOLONE ACETATE [Suspect]
     Indication: MUSCULAR WEAKNESS
     Dates: end: 20120905
  4. METHYLPREDNISOLONE ACETATE [Suspect]
     Indication: PAIN IN EXTREMITY
     Dates: end: 20120905
  5. METHYLPREDNISOLONE ACETATE [Suspect]
     Indication: PAIN IN EXTREMITY
     Dates: end: 20120905
  6. METHYLPREDNISOLONE ACETATE [Suspect]
     Indication: HYPOAESTHESIA
     Dates: end: 20120905
  7. METHYLPREDNISOLONE ACETATE [Suspect]
     Indication: NECK PAIN
     Dates: end: 20120905
  8. METHYLPREDNISOLONE ACETATE [Suspect]
     Indication: HEADACHE
     Dates: end: 20120905

REACTIONS (16)
  - Meningitis [None]
  - Meningitis fungal [None]
  - Product contamination [None]
  - Abasia [None]
  - Pain in extremity [None]
  - Pain in extremity [None]
  - Muscular weakness [None]
  - Muscle spasms [None]
  - Hypoaesthesia [None]
  - Abdominal pain lower [None]
  - Pain [None]
  - Activities of daily living impaired [None]
  - Dysstasia [None]
  - Impaired work ability [None]
  - Adverse drug reaction [None]
  - Middle insomnia [None]
